FAERS Safety Report 4501973-9 (Version None)
Quarter: 2004Q4

REPORT INFORMATION
  Report Type: 
  Country: None (occurrence: None)
  Receive Date: 20041109
  Receipt Date: 20041028
  Transmission Date: 20050328
  Serious: Yes (Hospitalization)
  Sender: FDA-Public Use
  Company Number: 6011302F

PATIENT
  Sex: Male

DRUGS (2)
  1. NIASPAN [Suspect]
  2. FOLIC ACID [Suspect]

REACTIONS (2)
  - BLOOD PRESSURE INCREASED [None]
  - CIRCULATORY COLLAPSE [None]
